FAERS Safety Report 7214551-8 (Version None)
Quarter: 2011Q1

REPORT INFORMATION
  Report Type: 
  Country: None (occurrence: None)
  Receive Date: 20110107
  Receipt Date: 20101231
  Transmission Date: 20110831
  Serious: Yes (Death)
  Sender: FDA-Public Use
  Company Number: US-PFIZER INC-2011002692

PATIENT
  Age: 65 Year
  Sex: Male

DRUGS (8)
  1. LAMOTRIGINE [Suspect]
  2. MODAFINIL [Suspect]
  3. ACETAMINOPHEN [Suspect]
  4. PROPRANOLOL [Suspect]
  5. VENLAFAXINE HCL [Suspect]
     Route: 048
  6. DOXEPIN HCL [Suspect]
     Route: 048
  7. ALPRAZOLAM [Suspect]
     Route: 048
  8. WARFARIN [Suspect]

REACTIONS (4)
  - COMPLETED SUICIDE [None]
  - CARDIAC ARREST [None]
  - RESPIRATORY ARREST [None]
  - INTENTIONAL DRUG MISUSE [None]
